FAERS Safety Report 7676607-5 (Version None)
Quarter: 2011Q3

REPORT INFORMATION
  Report Type: 
  Country: None (occurrence: None)
  Receive Date: 20110811
  Receipt Date: 20110805
  Transmission Date: 20111222
  Serious: Yes (Hospitalization)
  Sender: FDA-Public Use
  Company Number: US-B.I. PHARMACEUTICALS,INC./RIDGEFIELD-2011-BP-18400BP

PATIENT
  Sex: Female

DRUGS (5)
  1. EYE DROPS [Concomitant]
     Indication: GLAUCOMA
  2. SPIRIVA [Suspect]
     Indication: CHRONIC OBSTRUCTIVE PULMONARY DISEASE
     Dosage: 18 MCG
     Route: 055
     Dates: start: 20060101
  3. THYROID PILL [Concomitant]
     Indication: HYPOTHYROIDISM
  4. DIGOXIN [Concomitant]
     Indication: CARDIAC ASSISTANCE DEVICE USER
  5. BLOOD PRESSURE PILLS [Concomitant]
     Indication: HYPERTENSION

REACTIONS (2)
  - DYSPNOEA [None]
  - HEART RATE DECREASED [None]
